FAERS Safety Report 8420389-6 (Version None)
Quarter: 2012Q2

REPORT INFORMATION
  Report Type: 
  Country: None (occurrence: None)
  Receive Date: 20120607
  Receipt Date: 20120606
  Transmission Date: 20120825
  Serious: Yes (Hospitalization)
  Sender: FDA-Public Use
  Company Number: DE-MERCK-1206DEU00011

PATIENT
  Sex: Male

DRUGS (11)
  1. BUDESONIDE AND FORMOTEROL FUMARATE [Concomitant]
     Route: 065
  2. TIOTROPIUM BROMIDE [Concomitant]
     Route: 065
  3. GLIMEPIRIDE [Concomitant]
     Route: 065
  4. ASPIRIN [Concomitant]
     Route: 065
  5. PREGABALIN [Concomitant]
     Route: 065
  6. JANUVIA [Suspect]
     Indication: DIABETES MELLITUS
     Route: 048
     Dates: end: 20120606
  7. FOLIC ACID [Concomitant]
     Route: 065
  8. AMITRIPTYLINE HYDROCHLORIDE [Concomitant]
     Route: 065
  9. TORSEMIDE [Concomitant]
     Route: 065
  10. ACETYLDIGOXIN [Concomitant]
     Route: 065
  11. PREDNISOLONE [Concomitant]
     Route: 065

REACTIONS (1)
  - BLOOD TRIGLYCERIDES INCREASED [None]
